FAERS Safety Report 9722190 (Version 1)
Quarter: 2013Q4

REPORT INFORMATION
  Report Type: Other
  Country: GB (occurrence: GB)
  Receive Date: 20131202
  Receipt Date: 20131202
  Transmission Date: 20140711
  Serious: Yes (Hospitalization)
  Sender: FDA-Public Use
  Company Number: GB-TAKEDA-2013TEU000862

PATIENT
  Sex: 0

DRUGS (8)
  1. MEPACT [Suspect]
     Indication: OSTEOSARCOMA
     Dosage: 3.9 MG, 1 EVERY 4 DAYS
     Route: 042
     Dates: start: 20130822, end: 20130906
  2. ACETAZOLAMIDE [Concomitant]
     Indication: OSTEOSARCOMA
     Dosage: 500 MG, Q6HR
     Route: 048
     Dates: start: 20130430, end: 20130828
  3. ADRIAMYCIN [Concomitant]
     Indication: OSTEOSARCOMA
  4. CISPLATIN [Concomitant]
     Indication: OSTEOSARCOMA
     Dosage: 80 MG, UNK
     Route: 042
     Dates: start: 20130412, end: 20130726
  5. DEXAMETHASONE [Concomitant]
     Indication: OSTEOSARCOMA
     Dosage: 8 MG, UNK
     Route: 042
     Dates: start: 20130412, end: 20130726
  6. DOXORUBICIN HCL [Concomitant]
     Indication: OSTEOSARCOMA
     Dosage: 150 MG, UNK
     Route: 042
     Dates: start: 20130412, end: 20130726
  7. LEUCOVORIN                         /00566701/ [Concomitant]
     Indication: OSTEOSARCOMA
  8. METHOTREXATE [Concomitant]
     Indication: OSTEOSARCOMA
     Dosage: 24100 MG, UNK
     Route: 042
     Dates: start: 20130430, end: 20130828

REACTIONS (5)
  - Encephalopathy [Recovered/Resolved]
  - Coma scale abnormal [Recovered/Resolved]
  - Hemiparesis [Recovered/Resolved]
  - Somnolence [Recovered/Resolved]
  - Confusional state [Recovered/Resolved]
